FAERS Safety Report 7305993-0 (Version None)
Quarter: 2011Q1

REPORT INFORMATION
  Report Type: 
  Country: None (occurrence: None)
  Receive Date: 20110222
  Receipt Date: 20110211
  Transmission Date: 20110831
  Serious: Yes (Other)
  Sender: FDA-Public Use
  Company Number: US-WATSON-2011-01882

PATIENT
  Sex: Female
  Weight: 65.7 kg

DRUGS (1)
  1. CRINONE (WATSON LABORATORIES) [Suspect]
     Indication: INFERTILITY
     Dosage: ONCE DAILY BEFORE BEDTIME
     Route: 067
     Dates: start: 20101222, end: 20110110

REACTIONS (6)
  - HYPOAESTHESIA [None]
  - ABORTION SPONTANEOUS [None]
  - VAGINAL HAEMORRHAGE [None]
  - ABDOMINAL PAIN [None]
  - ABDOMINAL DISTENSION [None]
  - DRUG INEFFECTIVE [None]
